FAERS Safety Report 8716309 (Version 2)
Quarter: 2013Q4

REPORT INFORMATION
  Report Type: Spontaneous
  Country: US (occurrence: US)
  Receive Date: 20120810
  Receipt Date: 20131031
  Transmission Date: 20140711
  Serious: No
  Sender: FDA-Public Use
  Company Number: US-009507513-2012SP029421

PATIENT
  Age: 26 Year
  Sex: Female
  Weight: 58.97 kg

DRUGS (2)
  1. NUVARING [Suspect]
     Indication: CONTRACEPTION
     Route: 067
     Dates: start: 2010
  2. TRANSDERM SCOP [Suspect]

REACTIONS (1)
  - Mydriasis [Unknown]
